FAERS Safety Report 9522195 (Version 1)
Quarter: 2013Q1

REPORT INFORMATION
  Report Type: Spontaneous
  Country: US (occurrence: None)
  Receive Date: 20130305
  Receipt Date: 20130305
  Transmission Date: 20140127
  Serious: Yes (Other)
  Sender: FDA-Public Use
  Company Number: 163-21880-12072981

PATIENT
  Age: 77 Year
  Sex: Male

DRUGS (19)
  1. REVLIMID [Suspect]
     Indication: PLASMA CELL MYELOMA
     Route: 048
     Dates: start: 200906, end: 200906
  2. ACYCLOVIR (ACICLOVIR) (ACICLOVIR) [Concomitant]
  3. AMBIEN (ZOLPIDEM TARTRATE) [Concomitant]
  4. ASA (ACETYLSALICYLIC ACID) [Concomitant]
  5. CALTRATE (CALCIUM CARBONATE) [Concomitant]
  6. CENTRUM SILVER [Concomitant]
  7. DIFLORASONE [Concomitant]
  8. DOVONEX (CALCIPOTRIOL) [Concomitant]
  9. LOSARTAN [Concomitant]
  10. METROPOLOL [Concomitant]
  11. PREDNISONE [Concomitant]
  12. SIMVASTATIN [Concomitant]
  13. SOLU-MEDROL (METHYLPREDNISOLONE SODIUM SUCCINATE) [Concomitant]
  14. SPIRIVA (TIOTROPIUM BROMIDE) (TIOTROPIUM BROMIDE) [Concomitant]
  15. SYNTHROID (LEVOTHYROXINE SODIUM) [Concomitant]
  16. VELCADE (BORTEZOMIB) [Concomitant]
  17. ZOFRAN (ONDANSETRON HYDROCHLORIDE) [Concomitant]
  18. ZOMETA (ZOLEDRONIC ACID) [Concomitant]
  19. THIAZIDE DIURETIC (LOW-CEILING DIURETICS, THIAZIDES) [Concomitant]

REACTIONS (1)
  - Hypertension [None]
